FAERS Safety Report 6305913-1 (Version None)
Quarter: 2009Q3

REPORT INFORMATION
  Report Type: 
  Country: None (occurrence: None)
  Receive Date: 20090812
  Receipt Date: 20090730
  Transmission Date: 20100115
  Serious: Yes (Other)
  Sender: FDA-Public Use
  Company Number: IN-PFIZER INC-2009249551

PATIENT
  Age: 35 Year

DRUGS (1)
  1. DEPO-MEDROL [Suspect]
     Indication: TENDONITIS
     Dosage: FREQUENCY: ONCE, SINGLE DOSE;
     Dates: start: 20090601, end: 20090601

REACTIONS (1)
  - SKIN HYPOPIGMENTATION [None]
